FAERS Safety Report 9433884 (Version 2)
Quarter: 2013Q3

REPORT INFORMATION
  Report Type: Report from Study
  Country: KR (occurrence: KR)
  Receive Date: 20130801
  Receipt Date: 20130810
  Transmission Date: 20140515
  Serious: No
  Sender: FDA-Public Use
  Company Number: KR-ROCHE-1255442

PATIENT
  Sex: 0

DRUGS (1)
  1. RANIBIZUMAB [Suspect]
     Indication: PRODUCT USED FOR UNKNOWN INDICATION
     Route: 050

REACTIONS (1)
  - Retinal vein occlusion [Unknown]
